FAERS Safety Report 15712405 (Version 1)
Quarter: 2018Q4

REPORT INFORMATION
  Report Type: Spontaneous
  Country: IT (occurrence: IT)
  Receive Date: 20181212
  Receipt Date: 20181212
  Transmission Date: 20190205
  Serious: Yes (Hospitalization)
  Sender: FDA-Public Use
  Company Number: IT-TEVA-2018-IT-984947

PATIENT
  Age: 74 Year
  Sex: Female

DRUGS (10)
  1. TICLOPIDINE [Concomitant]
     Active Substance: TICLOPIDINE
  2. MINIAS 2,5 MG/ML GOCCE ORALI, SOLUZIONE [Concomitant]
     Active Substance: LORMETAZEPAM
  3. NOVORAPID [Concomitant]
     Active Substance: INSULIN ASPART
  4. CRESTOR [Concomitant]
     Active Substance: ROSUVASTATIN CALCIUM
  5. NOVOMIX 30 FLEXPEN 100 UNITS/ML SUSPENSION FOR INJECTION IN PRE-FILLED [Concomitant]
  6. ESOMEPRAZOLE. [Concomitant]
     Active Substance: ESOMEPRAZOLE MAGNESIUM
  7. VENLAFAXINE [Suspect]
     Active Substance: VENLAFAXINE HYDROCHLORIDE
     Indication: DRUG ABUSE
     Route: 048
     Dates: start: 20181014, end: 20181014
  8. LEVEMIR [Suspect]
     Active Substance: INSULIN DETEMIR
     Indication: DRUG ABUSE
     Route: 065
     Dates: start: 20181014, end: 20181014
  9. LYRICA [Suspect]
     Active Substance: PREGABALIN
     Indication: DRUG ABUSE
     Route: 048
     Dates: start: 20181014, end: 20181014
  10. BLOPRESID [Concomitant]
     Active Substance: CANDESARTAN CILEXETIL\HYDROCHLOROTHIAZIDE

REACTIONS (2)
  - Toxicity to various agents [Unknown]
  - Sopor [Unknown]

NARRATIVE: CASE EVENT DATE: 20181014
